FAERS Safety Report 4289315-8 (Version None)
Quarter: 2004Q1

REPORT INFORMATION
  Report Type: 
  Country: None (occurrence: None)
  Receive Date: 20040206
  Receipt Date: 20040202
  Transmission Date: 20041129
  Serious: Yes (Hospitalization)
  Sender: FDA-Public Use
  Company Number: 2004197194JP

PATIENT
  Sex: Female

DRUGS (1)
  1. AZULFIDINE [Suspect]
     Indication: RHEUMATOID ARTHRITIS
     Dosage: 1 G DAILY, ORAL
     Route: 048
     Dates: start: 20031201, end: 20040201

REACTIONS (2)
  - NASOPHARYNGITIS [None]
  - PANCYTOPENIA [None]
